FAERS Safety Report 23199802 (Version 1)
Quarter: 2023Q4

REPORT INFORMATION
  Report Type: Spontaneous
  Country: US (occurrence: US)
  Receive Date: 20231117
  Receipt Date: 20231117
  Transmission Date: 20240110
  Serious: No
  Sender: FDA-Public Use
  Company Number: US-PFIZER INC-PV202300186351

PATIENT
  Age: 78 Year
  Sex: Male
  Weight: 99.229 kg

DRUGS (2)
  1. IBRANCE [Suspect]
     Active Substance: PALBOCICLIB
     Indication: Breast cancer metastatic
     Dosage: 125 MG, CYCLIC (ONCE A DAY WITH OR)
  2. FEMARA [Concomitant]
     Active Substance: LETROZOLE
     Dosage: UNK, DAILY EVERY 28 DAYS
     Route: 048

REACTIONS (1)
  - Blood glucose increased [Unknown]
